FAERS Safety Report 6473670 (Version 14)
Quarter: 2014Q1

REPORT INFORMATION
  Report Type: Spontaneous
  Country: US (occurrence: US)
  Receive Date: 20071121
  Receipt Date: 20140227
  Transmission Date: 20141002
  Serious: Yes (Hospitalization, Congenital Anomaly, Other)
  Sender: FDA-Public Use
  Company Number: US-PFIZER INC-2007095337

PATIENT
  Sex: Male

DRUGS (20)
  1. ZOLOFT [Suspect]
     Indication: ANXIETY
     Dosage: 50 MG, DAILY
     Route: 064
     Dates: start: 200402
  2. ZOLOFT [Suspect]
     Indication: DEPRESSION
     Dosage: 50 MG, DAILY
     Route: 064
     Dates: start: 200403, end: 200609
  3. ZOLOFT [Suspect]
     Indication: AFFECTIVE DISORDER
  4. ZOLOFT [Suspect]
     Indication: IRRITABILITY
  5. ZOLOFT [Suspect]
     Indication: RESTLESSNESS
  6. SERTRALINE HCL [Suspect]
     Indication: IRRITABILITY
     Dosage: 50 MG, DAILY
     Route: 064
     Dates: start: 20060103, end: 200701
  7. SERTRALINE HCL [Suspect]
     Indication: RESTLESSNESS
  8. SERTRALINE HCL [Suspect]
     Indication: ANXIETY
  9. TETRACYCLINE [Concomitant]
     Indication: ACNE
     Dosage: 500 MG, AS DIRECTED
     Route: 064
     Dates: start: 20050302
  10. DIFFERIN [Concomitant]
     Indication: ACNE
     Dosage: UNK
     Route: 064
  11. ZITHROMAX ^PFIZER^ [Concomitant]
     Indication: SINUSITIS
     Dosage: UNK
     Route: 064
  12. PRENATAL VITAMINS [Concomitant]
     Dosage: UNK
     Route: 064
  13. FOLIC ACID [Concomitant]
     Dosage: UNK
     Route: 064
  14. AMPICILLIN [Concomitant]
     Indication: INFECTION
     Dosage: 250 MG, AS DIRECTED
     Route: 064
     Dates: start: 20060215
  15. NITROFURANT [Concomitant]
     Dosage: 100 MG, AS DIRECTED
     Route: 064
     Dates: start: 20060109
  16. TYLENOL [Concomitant]
     Dosage: UNK
     Route: 064
  17. ALEVE [Concomitant]
     Dosage: UNK
     Route: 064
  18. PREDNISONE [Concomitant]
     Dosage: UNK
     Route: 064
  19. ZITHROMAX [Concomitant]
     Dosage: 250 MG, AS DIRECTED
     Route: 064
     Dates: start: 20051102
  20. NITROFURANTOIN MONO/MAC [Concomitant]
     Dosage: 100 MG, AS DIRECTED
     Route: 064
     Dates: start: 20060422

REACTIONS (18)
  - Foetal exposure during pregnancy [Unknown]
  - Transposition of the great vessels [Recovered/Resolved]
  - Ventricular septal defect [Recovering/Resolving]
  - Atrial septal defect [Unknown]
  - Pulmonary valve stenosis congenital [Unknown]
  - Respiratory distress [Unknown]
  - Double outlet right ventricle [Recovering/Resolving]
  - Ventricular septal defect [Unknown]
  - Heart disease congenital [Unknown]
  - Patent ductus arteriosus [Recovered/Resolved]
  - Aortic valve incompetence [Unknown]
  - Arterial stenosis [Unknown]
  - Heart valve incompetence [Unknown]
  - Hyponatraemia [Unknown]
  - Gastrooesophageal reflux disease [Unknown]
  - Asthenia [Unknown]
  - Ear swelling [Unknown]
  - Congenital anomaly [Unknown]
